FAERS Safety Report 7544889-6 (Version None)
Quarter: 2011Q2

REPORT INFORMATION
  Report Type: 
  Country: None (occurrence: None)
  Receive Date: 20110614
  Receipt Date: 20110530
  Transmission Date: 20111010
  Serious: Yes (Hospitalization, Other)
  Sender: FDA-Public Use
  Company Number: US-BAYER-2010-003176

PATIENT
  Age: 22 Year
  Sex: Female
  Weight: 54.422 kg

DRUGS (1)
  1. YAZ [Suspect]
     Indication: ACNE
     Dosage: UNK
     Dates: start: 20091201, end: 20100331

REACTIONS (9)
  - COUGH [None]
  - INJURY [None]
  - PULMONARY EMBOLISM [None]
  - DYSPNOEA [None]
  - PARANOIA [None]
  - PAIN [None]
  - PULMONARY INFARCTION [None]
  - VOMITING [None]
  - CHEST PAIN [None]
